FAERS Safety Report 4524624-6 (Version None)
Quarter: 2004Q4

REPORT INFORMATION
  Report Type: 
  Country: None (occurrence: None)
  Receive Date: 20041117
  Receipt Date: 20040405
  Transmission Date: 20050328
  Serious: Yes (Other)
  Sender: FDA-Public Use
  Company Number: 2004S1001000

PATIENT
  Age: 71 Year
  Sex: Female

DRUGS (2)
  1. CLOZAPINE [Suspect]
     Dosage: ORAL
     Route: 048
  2. CLOZAPINE [Suspect]
     Dosage: ORAL
     Route: 048
     Dates: start: 20040301

REACTIONS (1)
  - LIVER FUNCTION TEST ABNORMAL [None]
